FAERS Safety Report 24229310 (Version 1)
Quarter: 2024Q3

REPORT INFORMATION
  Report Type: Spontaneous
  Country: US (occurrence: US)
  Receive Date: 20240820
  Receipt Date: 20240820
  Transmission Date: 20241017
  Serious: No
  Sender: SANOFI AVENTIS
  Company Number: US-SA-SAC20240816001474

PATIENT
  Sex: Female
  Weight: 56.69 kg

DRUGS (11)
  1. DUPIXENT [Suspect]
     Active Substance: DUPILUMAB
     Indication: Product used for unknown indication
     Dosage: 300 MG, QOW
     Route: 058
  2. METOPROLOL SUCCINATE [Concomitant]
     Active Substance: METOPROLOL SUCCINATE
  3. FUROSEMIDE [Concomitant]
     Active Substance: FUROSEMIDE
  4. JARDIANCE [Concomitant]
     Active Substance: EMPAGLIFLOZIN
  5. DAPSONE [Concomitant]
     Active Substance: DAPSONE
  6. CALCITRIOL [Concomitant]
     Active Substance: CALCITRIOL
  7. MIRTAZAPINE [Concomitant]
     Active Substance: MIRTAZAPINE
  8. SPIRONOLACTONE [Concomitant]
     Active Substance: SPIRONOLACTONE
  9. ELIQUIS [Concomitant]
     Active Substance: APIXABAN
  10. SERTRALINE [Concomitant]
     Active Substance: SERTRALINE HYDROCHLORIDE
  11. CLONIDINE [Concomitant]
     Active Substance: CLONIDINE

REACTIONS (1)
  - Weight decreased [Unknown]
